FAERS Safety Report 7997867-7 (Version None)
Quarter: 2011Q4

REPORT INFORMATION
  Report Type: 
  Country: None (occurrence: None)
  Receive Date: 20111221
  Receipt Date: 20111213
  Transmission Date: 20120403
  Serious: Yes (Other)
  Sender: FDA-Public Use
  Company Number: PHHY2011NL78544

PATIENT
  Sex: Female

DRUGS (5)
  1. ZOMETA [Suspect]
     Dosage: 4MG/5ML
     Route: 042
     Dates: start: 20110802
  2. ZOMETA [Suspect]
     Dosage: 4 MG/5 ML
     Route: 042
     Dates: start: 20111028
  3. ZOMETA [Suspect]
     Dosage: 4 MG/5ML
     Route: 042
     Dates: start: 20111121
  4. ZOMETA [Suspect]
     Dosage: 4MG/5ML
     Route: 042
     Dates: start: 20110902
  5. ZOMETA [Suspect]
     Indication: BREAST CANCER METASTATIC
     Dosage: 4 MG/5ML
     Route: 042
     Dates: start: 20100315

REACTIONS (2)
  - BONE PAIN [None]
  - TUMOUR MARKER INCREASED [None]
